FAERS Safety Report 8512843-3 (Version None)
Quarter: 2012Q3

REPORT INFORMATION
  Report Type: 
  Country: None (occurrence: None)
  Receive Date: 20120716
  Receipt Date: 20120710
  Transmission Date: 20120928
  Serious: Yes (Other)
  Sender: FDA-Public Use
  Company Number: AU-B.I. PHARMACEUTICALS,INC./RIDGEFIELD-2012-AU-00859AU

PATIENT
  Sex: Male
  Weight: 120 kg

DRUGS (9)
  1. PLAVIX [Concomitant]
  2. SOTALOL HCL [Concomitant]
  3. PRADAXA [Suspect]
     Indication: ATRIAL FIBRILLATION
     Dosage: 150 MG
     Dates: start: 20110725
  4. SPIRONOLACTONE [Concomitant]
  5. ADALAT [Concomitant]
  6. LIPITOR [Concomitant]
  7. PRADAXA [Suspect]
     Indication: CEREBROVASCULAR ACCIDENT PROPHYLAXIS
     Dates: start: 20120601
  8. PERINDOPRIL ERBUMINE [Concomitant]
  9. LANOXIN [Concomitant]

REACTIONS (1)
  - VASCULAR GRAFT OCCLUSION [None]
